FAERS Safety Report 10949793 (Version 1)
Quarter: 2015Q1

REPORT INFORMATION
  Report Type: Spontaneous
  Country: US (occurrence: None)
  Receive Date: 20150323
  Receipt Date: 20150323
  Transmission Date: 20150721
  Serious: Yes (Hospitalization)
  Sender: FDA-Public Use
  Company Number: None

PATIENT
  Age: 22 Year
  Sex: Female
  Weight: 68.04 kg

DRUGS (2)
  1. PAMELOR [Suspect]
     Active Substance: NORTRIPTYLINE HYDROCHLORIDE
     Indication: PAIN
     Dosage: 1 PILL
     Route: 048
     Dates: start: 20141125, end: 20141129
  2. PAMELOR [Suspect]
     Active Substance: NORTRIPTYLINE HYDROCHLORIDE
     Indication: DEPRESSION
     Dosage: 1 PILL
     Route: 048
     Dates: start: 20141125, end: 20141129

REACTIONS (19)
  - Emotional disorder [None]
  - Suicidal ideation [None]
  - Muscle spasms [None]
  - Bipolar disorder [None]
  - Anxiety [None]
  - Weight decreased [None]
  - Abnormal behaviour [None]
  - Confusional state [None]
  - Palpitations [None]
  - Drug ineffective [None]
  - Mania [None]
  - Adverse drug reaction [None]
  - Insomnia [None]
  - Anger [None]
  - Gastric disorder [None]
  - Migraine [None]
  - Fear [None]
  - Dyspnoea [None]
  - Condition aggravated [None]

NARRATIVE: CASE EVENT DATE: 20141205
